FAERS Safety Report 7888063-2 (Version None)
Quarter: 2011Q4

REPORT INFORMATION
  Report Type: 
  Country: None (occurrence: None)
  Receive Date: 20111101
  Receipt Date: 20111020
  Transmission Date: 20120403
  Serious: Yes (Death, Hospitalization)
  Sender: FDA-Public Use
  Company Number: AUR-APL-2011-05570

PATIENT
  Age: 74 Year
  Sex: Male
  Weight: 70.75 kg

DRUGS (9)
  1. VESICARE [Concomitant]
  2. BAPINEUZUMAB [Suspect]
     Indication: DEMENTIA ALZHEIMER'S TYPE
     Dosage: 0.0055 MG/KG (0.5 MG/KG,1 IN 13 WK),PARENTERAL
     Route: 051
     Dates: start: 20110831, end: 20110831
  3. ASPIRIN [Suspect]
     Indication: PROPHYLAXIS
     Dosage: (81 MG)
     Dates: start: 20100831
  4. NAMENDA [Concomitant]
  5. METOPROLOL SUCCINATE [Suspect]
     Indication: CARDIOVASCULAR EVENT PROPHYLAXIS
     Dosage: 50 MG (25 MG,2 IN 1 D)
     Dates: start: 20100902
  6. PLAVIX [Suspect]
     Indication: CARDIOVASCULAR EVENT PROPHYLAXIS
     Dosage: (25 MG)
     Dates: start: 20100902
  7. ARICEPT [Concomitant]
  8. LOVASTATIN [Concomitant]
  9. FLORINEF [Concomitant]

REACTIONS (8)
  - COMA [None]
  - SUBARACHNOID HAEMORRHAGE [None]
  - HAEMOGLOBIN DECREASED [None]
  - BLOOD GLUCOSE INCREASED [None]
  - RUPTURED CEREBRAL ANEURYSM [None]
  - BLOOD CALCIUM DECREASED [None]
  - INTRAVENTRICULAR HAEMORRHAGE [None]
  - DRUG DOSE OMISSION [None]
